FAERS Safety Report 4842454-2 (Version None)
Quarter: 2005Q4

REPORT INFORMATION
  Report Type: 
  Country: None (occurrence: None)
  Receive Date: 20051129
  Receipt Date: 20051107
  Transmission Date: 20060501
  Serious: No
  Sender: FDA-Public Use
  Company Number: US200511000237

PATIENT
  Sex: Female

DRUGS (1)
  1. CYMBALTA [Suspect]
     Dosage: 60 MG, DAILY ( 1/D), ORAL
     Route: 048
     Dates: start: 20040101, end: 20050101

REACTIONS (1)
  - HEPATIC ENZYME INCREASED [None]
